FAERS Safety Report 10155760 (Version 2)
Quarter: 2014Q2

REPORT INFORMATION
  Report Type: Spontaneous
  Country: BR (occurrence: BR)
  Receive Date: 20140506
  Receipt Date: 20140506
  Transmission Date: 20141212
  Serious: Yes (Life-Threatening, Hospitalization, Other)
  Sender: FDA-Public Use
  Company Number: BR-009507513-1404BRA003560

PATIENT
  Age: 54 Year
  Sex: Female

DRUGS (10)
  1. BRIDION [Suspect]
     Indication: NEUROMUSCULAR BLOCKADE REVERSAL
     Dosage: UNK, ONCE
     Route: 040
     Dates: start: 20140324, end: 20140324
  2. ESMERON [Suspect]
     Dosage: 20 MG, UNK
     Dates: start: 20140324, end: 20140324
  3. FENTANYL [Concomitant]
     Indication: PREMEDICATION
     Dosage: 100 MG, UNK
     Route: 042
     Dates: start: 20140324, end: 20140324
  4. MORPHINE [Concomitant]
     Dosage: 5 MG, UNK
     Dates: start: 20140324, end: 20140324
  5. PROPOFOL [Concomitant]
     Dosage: UNK
     Dates: start: 20140324, end: 20140324
  6. REMIFENTANIL HYDROCHLORIDE [Concomitant]
     Dosage: UNK
     Dates: start: 20140324, end: 20140324
  7. DEXAMETHASONE [Concomitant]
     Dosage: UNK
     Dates: start: 20140324
  8. DIPYRONE [Concomitant]
     Dosage: UNK
     Dates: start: 20140324
  9. ONDANSETRON [Concomitant]
     Dosage: UNK
     Dates: start: 20140324
  10. CEFAZOLIN [Concomitant]
     Dosage: UNK
     Dates: start: 20140324

REACTIONS (8)
  - Cardiac arrest [Recovered/Resolved]
  - Cardiac arrest [Recovered/Resolved]
  - Anaphylactic shock [Recovered/Resolved]
  - Myopathy [Unknown]
  - Hypotension [Recovered/Resolved]
  - Eyelid oedema [Recovered/Resolved]
  - Erythema [Recovered/Resolved]
  - Coronary artery insufficiency [Not Recovered/Not Resolved]
